FAERS Safety Report 13238315 (Version 1)
Quarter: 2017Q1

REPORT INFORMATION
  Report Type: Spontaneous
  Country: US (occurrence: US)
  Receive Date: 20170215
  Receipt Date: 20170215
  Transmission Date: 20170428
  Serious: Yes (Disabling)
  Sender: FDA-Public Use
  Company Number: None

PATIENT
  Age: 58 Year
  Sex: Female
  Weight: 85.5 kg

DRUGS (3)
  1. ARIMIDEX [Suspect]
     Active Substance: ANASTROZOLE
     Indication: BREAST CANCER
     Dosage: ?          QUANTITY:1 TABLET(S);?
     Route: 048
  2. MULTIVITAMINS [Concomitant]
     Active Substance: VITAMINS
  3. TAMOXIFEN [Concomitant]
     Active Substance: TAMOXIFEN

REACTIONS (1)
  - Tendon rupture [None]

NARRATIVE: CASE EVENT DATE: 20110915
